FAERS Safety Report 10710665 (Version 3)
Quarter: 2015Q1

REPORT INFORMATION
  Report Type: Spontaneous
  Country: DE (occurrence: DE)
  Receive Date: 20150114
  Receipt Date: 20150124
  Transmission Date: 20150721
  Serious: Yes (Disabling, Other)
  Sender: FDA-Public Use
  Company Number: DE-ASTRAZENECA-2015SE02751

PATIENT
  Sex: Female

DRUGS (2)
  1. ROPIVACAIN [Suspect]
     Active Substance: ROPIVACAINE
     Indication: BRACHIAL PLEXUS INJURY
     Route: 065
  2. PRILOCAIN [Suspect]
     Active Substance: PRILOCAINE
     Indication: BRACHIAL PLEXUS INJURY
     Route: 065

REACTIONS (5)
  - Monoparesis [Unknown]
  - Brachial plexus injury [Unknown]
  - Drug administered at inappropriate site [Unknown]
  - Localised oedema [Unknown]
  - Off label use [Unknown]

NARRATIVE: CASE EVENT DATE: 2013
